FAERS Safety Report 14266653 (Version 1)
Quarter: 2017Q4

REPORT INFORMATION
  Report Type: Spontaneous
  Country: US (occurrence: US)
  Receive Date: 20171211
  Receipt Date: 20171211
  Transmission Date: 20180321
  Serious: Yes (Hospitalization)
  Sender: FDA-Public Use
  Company Number: US-INGENUS PHARMACEUTICALS NJ, LLC-ING201712-000648

PATIENT
  Age: 76 Year
  Sex: Male

DRUGS (2)
  1. CARISOPRODOL AND ASPIRIN [Suspect]
     Active Substance: ASPIRIN\CARISOPRODOL
     Indication: CORONARY ARTERY DISEASE
  2. CARISOPRODOL AND ASPIRIN [Suspect]
     Active Substance: ASPIRIN\CARISOPRODOL

REACTIONS (3)
  - Dyspnoea [Recovering/Resolving]
  - Drug hypersensitivity [Unknown]
  - Hypoxia [Recovering/Resolving]
